FAERS Safety Report 4769810-5 (Version None)
Quarter: 2005Q3

REPORT INFORMATION
  Report Type: 
  Country: None (occurrence: None)
  Receive Date: 20050912
  Receipt Date: 20050614
  Transmission Date: 20060218
  Serious: Yes (Other)
  Sender: FDA-Public Use
  Company Number: 2005-01291

PATIENT
  Age: 76 Year
  Sex: Female
  Weight: 63.9 kg

DRUGS (1)
  1. VELCADE [Suspect]
     Indication: MULTIPLE MYELOMA
     Dosage: 2.20 MG, IV BOLUS
     Route: 040
     Dates: start: 20050215, end: 20050321

REACTIONS (1)
  - HERPES ZOSTER [None]
